FAERS Safety Report 5894147-0 (Version None)
Quarter: 2008Q3

REPORT INFORMATION
  Report Type: 
  Country: None (occurrence: None)
  Receive Date: 20080922
  Receipt Date: 20080917
  Transmission Date: 20090109
  Serious: Yes (Hospitalization, Other)
  Sender: FDA-Public Use
  Company Number: 2008SP019206

PATIENT
  Age: 53 Year
  Sex: Male
  Weight: 115.2136 kg

DRUGS (3)
  1. PEG-INTRON [Suspect]
     Indication: HEPATITIS C
     Dosage: SC, SC
     Route: 058
     Dates: start: 20070411
  2. RIBAVIRIN [Suspect]
     Indication: HEPATITIS C
     Dosage: PO, PO
     Route: 048
     Dates: start: 20070411
  3. RIBAVIRIN [Suspect]
     Indication: HEPATITIS C
     Dosage: PO, PO
     Route: 048
     Dates: start: 20080313

REACTIONS (6)
  - HYPERHIDROSIS [None]
  - NERVE INJURY [None]
  - PARAESTHESIA [None]
  - THROMBOSIS [None]
  - WEIGHT DECREASED [None]
  - WHITE BLOOD CELL COUNT ABNORMAL [None]
